FAERS Safety Report 7178273-4 (Version None)
Quarter: 2010Q4

REPORT INFORMATION
  Report Type: 
  Country: None (occurrence: None)
  Receive Date: 20101220
  Receipt Date: 20101217
  Transmission Date: 20110411
  Serious: Yes (Other)
  Sender: FDA-Public Use
  Company Number: GB-PFIZER INC-2010170277

PATIENT
  Age: 76 Year
  Sex: Female

DRUGS (1)
  1. AROMASIN [Suspect]
     Dosage: UNK

REACTIONS (2)
  - URETHRAL HAEMORRHAGE [None]
  - URINARY BLADDER HAEMORRHAGE [None]
